FAERS Safety Report 21248155 (Version 1)
Quarter: 2022Q3

REPORT INFORMATION
  Report Type: Spontaneous
  Country: US (occurrence: None)
  Receive Date: 20220823
  Receipt Date: 20220823
  Transmission Date: 20221027
  Serious: Yes (Life-Threatening, Other)
  Sender: FDA-Public Use
  Company Number: None

PATIENT
  Age: 11 Year
  Sex: Male
  Weight: 47.25 kg

DRUGS (1)
  1. LANTUS [Suspect]
     Active Substance: INSULIN GLARGINE
     Indication: Type 1 diabetes mellitus
     Dosage: OTHER QUANTITY : 36 INJECTION(S);?FREQUENCY : TWICE A DAY;?
     Route: 030
     Dates: start: 20200814, end: 20220823

REACTIONS (6)
  - Therapeutic response shortened [None]
  - Injection site pain [None]
  - Injection site erythema [None]
  - Injection site irritation [None]
  - Hypoglycaemia [None]
  - Hyperglycaemia [None]

NARRATIVE: CASE EVENT DATE: 20220801
